FAERS Safety Report 6089594-0 (Version None)
Quarter: 2009Q1

REPORT INFORMATION
  Report Type: 
  Country: None (occurrence: None)
  Receive Date: 20090224
  Receipt Date: 20090212
  Transmission Date: 20090719
  Serious: Yes (Other)
  Sender: FDA-Public Use
  Company Number: PHHY2009JP05229

PATIENT
  Sex: Male

DRUGS (1)
  1. ZADITEN [Suspect]
     Dosage: UNK

REACTIONS (3)
  - DISORIENTATION [None]
  - FALL [None]
  - SOMNOLENCE [None]
